FAERS Safety Report 10641729 (Version 1)
Quarter: 2014Q4

REPORT INFORMATION
  Report Type: Spontaneous
  Country: DE (occurrence: DE)
  Receive Date: 20141209
  Receipt Date: 20141209
  Transmission Date: 20150529
  Serious: Yes (Congenital Anomaly, Other)
  Sender: FDA-Public Use
  Company Number: DE-TEVA-526352GER

PATIENT
  Age: 1 Day
  Sex: Male

DRUGS (13)
  1. PARTUSISTEN [Concomitant]
     Active Substance: FENOTEROL
     Indication: PREMATURE LABOUR
     Dosage: UNKNWON UNTIL WHEN
     Route: 064
     Dates: start: 20130111
  2. SEROQUEL [Suspect]
     Active Substance: QUETIAPINE FUMARATE
     Indication: BIPOLAR DISORDER
     Dosage: 600 MILLIGRAM DAILY;
     Route: 064
     Dates: start: 20120604, end: 20130309
  3. L-THYROXIN [Concomitant]
     Active Substance: LEVOTHYROXINE SODIUM
     Indication: HYPOTHYROIDISM
     Dosage: 100 [MICROG/D (UNTIL 75) ] / HYPOTHYROIDISM AS ADVERSE EFFECT OF LITHIUM THERAPY
     Route: 064
     Dates: start: 20120604, end: 20130309
  4. CYTOTEC [Concomitant]
     Active Substance: MISOPROSTOL
     Indication: LABOUR INDUCTION
     Route: 064
     Dates: start: 20130308, end: 20130308
  5. PROTAPHANE [Concomitant]
     Active Substance: INSULIN HUMAN
     Indication: GESTATIONAL DIABETES
     Route: 064
  6. CELESTAN [Concomitant]
     Active Substance: BETAMETHASONE
     Indication: MATERNAL THERAPY TO ENHANCE FOETAL LUNG MATURITY
     Dosage: 4 MILLIGRAM DAILY;
     Route: 064
     Dates: start: 20130116, end: 20130117
  7. LAMOTRIGIN [Suspect]
     Active Substance: LAMOTRIGINE
     Indication: BIPOLAR DISORDER
     Dosage: 300 MILLIGRAM DAILY;
     Route: 064
     Dates: start: 20120604, end: 20130309
  8. CEFUROXIM [Concomitant]
     Active Substance: CEFUROXIME
     Indication: INFECTION PROPHYLAXIS
     Dosage: 1500 MILLIGRAM DAILY;
     Route: 064
     Dates: start: 20130308, end: 20130308
  9. SERTRALINE [Suspect]
     Active Substance: SERTRALINE HYDROCHLORIDE
     Indication: BIPOLAR DISORDER
     Dosage: 100 MILLIGRAM DAILY;
     Route: 064
     Dates: start: 20120604, end: 20130309
  10. QUILONUM [Suspect]
     Active Substance: LITHIUM CARBONATE
     Indication: BIPOLAR DISORDER
     Dosage: 1350 MILLIGRAM DAILY; 1350 /MG/D (UNTIL 1150) )
     Route: 064
     Dates: start: 20120604, end: 20130309
  11. FOLSAEURE [Concomitant]
     Active Substance: FOLIC ACID
     Indication: PROPHYLAXIS OF NEURAL TUBE DEFECT
     Dosage: 5 MILLIGRAM DAILY;
     Route: 064
     Dates: start: 20120604, end: 20130309
  12. METFORMIN [Concomitant]
     Active Substance: METFORMIN HYDROCHLORIDE
     Indication: POLYCYSTIC OVARIES
     Dosage: 1500 MILLIGRAM DAILY;
     Route: 064
     Dates: start: 20120604, end: 20120724
  13. AMOXYPEN [Concomitant]
     Active Substance: AMOXICILLIN
     Indication: C-REACTIVE PROTEIN INCREASED
     Dosage: 1500 MILLIGRAM DAILY;
     Route: 064

REACTIONS (6)
  - Pyloric stenosis [Recovered/Resolved]
  - Haemangioma congenital [Unknown]
  - Vesicoureteric reflux [Not Recovered/Not Resolved]
  - Kidney duplex [Not Recovered/Not Resolved]
  - Foetal exposure during pregnancy [Unknown]
  - Agitation neonatal [Recovered/Resolved]

NARRATIVE: CASE EVENT DATE: 20130309
